FAERS Safety Report 19575114 (Version 1)
Quarter: 2021Q3

REPORT INFORMATION
  Report Type: Report from Study
  Country: US (occurrence: US)
  Receive Date: 20210719
  Receipt Date: 20210719
  Transmission Date: 20211014
  Serious: No
  Sender: FDA-Public Use
  Company Number: US-VANDA PHARMACEUTICALS, INC-2021TASUS004676

PATIENT
  Age: 37 Year
  Sex: Female
  Weight: 68.03 kg

DRUGS (4)
  1. HETLIOZ [Suspect]
     Active Substance: TASIMELTEON
     Indication: NON-24-HOUR SLEEP-WAKE DISORDER
     Dosage: 20 MILLIGRAM, QD AT BEDTIME
     Route: 048
     Dates: start: 20201103
  2. SONATA [Concomitant]
     Active Substance: ZALEPLON
     Indication: PRODUCT USED FOR UNKNOWN INDICATION
  3. PRAZOSIN. [Concomitant]
     Active Substance: PRAZOSIN
     Indication: PRODUCT USED FOR UNKNOWN INDICATION
     Dosage: UNK
  4. HETLIOZ [Suspect]
     Active Substance: TASIMELTEON
     Dosage: 20 MILLIGRAM, QD AT BEDTIME
     Route: 048
     Dates: start: 20201103

REACTIONS (4)
  - Drug ineffective [Unknown]
  - Somnolence [Unknown]
  - Insomnia [Unknown]
  - Migraine [Unknown]

NARRATIVE: CASE EVENT DATE: 20210122
